FAERS Safety Report 17462703 (Version 5)
Quarter: 2020Q2

REPORT INFORMATION
  Report Type: Report from Study
  Country: KR (occurrence: KR)
  Receive Date: 20200226
  Receipt Date: 20200416
  Transmission Date: 20200713
  Serious: Yes (Hospitalization)
  Sender: FDA-Public Use
  Company Number: KR-JNJFOC-20200234769

PATIENT
  Sex: Male
  Weight: 47.5 kg

DRUGS (29)
  1. FEROBA U [Concomitant]
     Active Substance: FERROUS SULFATE
     Dosage: 512 MG
     Route: 048
     Dates: start: 20150714, end: 20200217
  2. ATOZET [Concomitant]
     Active Substance: ATORVASTATIN CALCIUM\EZETIMIBE
     Indication: CEREBRAL INFARCTION
     Dosage: 1 DF
     Route: 048
     Dates: start: 20200303
  3. RIVAROXABAN [Suspect]
     Active Substance: RIVAROXABAN
     Indication: CEREBROVASCULAR ACCIDENT PROPHYLAXIS
     Dosage: 15 MG, QD
     Route: 048
     Dates: start: 20191121, end: 20200217
  4. LASIX [Concomitant]
     Active Substance: FUROSEMIDE
     Dosage: 20 MG
     Route: 048
     Dates: start: 20200219
  5. LEVOTUSS [Concomitant]
     Active Substance: LEVODROPROPIZINE
     Dosage: 120 MG
     Route: 048
     Dates: start: 20180821, end: 20200217
  6. TAMSNAL [Concomitant]
     Dosage: 0.2 MG
     Route: 048
     Dates: start: 20200219
  7. XATRAL                             /00975302/ [Concomitant]
     Active Substance: ALFUZOSIN HYDROCHLORIDE
     Dosage: 10 MG
     Route: 048
     Dates: start: 20200219
  8. SUPRAX [Concomitant]
     Active Substance: CEFIXIME
     Indication: COUGH
     Dosage: 200 MG
     Route: 048
     Dates: start: 20191128, end: 20191211
  9. LANSTON [Concomitant]
     Active Substance: LANSOPRAZOLE
     Indication: GASTROINTESTINAL ANGIODYSPLASIA
     Dosage: 30 MG
     Route: 048
     Dates: start: 20200219
  10. FEROBA U [Concomitant]
     Active Substance: FERROUS SULFATE
     Dosage: 256 MG
     Route: 048
     Dates: start: 20200218, end: 20200218
  11. FEROBA U [Concomitant]
     Active Substance: FERROUS SULFATE
     Dosage: 512 MG
     Route: 048
     Dates: start: 20200219
  12. ALDACTONE [Concomitant]
     Active Substance: SPIRONOLACTONE
     Dosage: 12.5 MG
     Route: 048
     Dates: start: 20110927
  13. DIMENHYDRINATE. [Concomitant]
     Active Substance: DIMENHYDRINATE
     Dosage: 100 MG
     Route: 048
     Dates: start: 20200219
  14. ANORO ELLIPTA [Concomitant]
     Active Substance: UMECLIDINIUM BROMIDE\VILANTEROL TRIFENATATE
     Indication: COUGH
     Dosage: 1 DF, QD
     Route: 055
     Dates: start: 20191205
  15. LASIX [Concomitant]
     Active Substance: FUROSEMIDE
     Dosage: 20 MG
     Route: 048
     Dates: start: 20190930, end: 20200216
  16. DIMENHYDRINATE. [Concomitant]
     Active Substance: DIMENHYDRINATE
     Dosage: 100 MG
     Route: 048
     Dates: start: 20120706, end: 20200217
  17. DIMENHYDRINATE. [Concomitant]
     Active Substance: DIMENHYDRINATE
     Dosage: 50 MG
     Route: 048
     Dates: start: 20200218, end: 20200218
  18. LEVOTUSS [Concomitant]
     Active Substance: LEVODROPROPIZINE
     Dosage: 60 MG
     Route: 048
     Dates: start: 20200218, end: 20200218
  19. PHENIRAMIN [Concomitant]
     Dosage: 4 MG
     Route: 042
     Dates: start: 20200217, end: 20200218
  20. LEVOTUSS [Concomitant]
     Active Substance: LEVODROPROPIZINE
     Dosage: 120 MG
     Route: 048
     Dates: start: 20200219
  21. RIVAROXABAN [Suspect]
     Active Substance: RIVAROXABAN
     Indication: THROMBOSIS PROPHYLAXIS
  22. ERDOS [Concomitant]
     Active Substance: ERDOSTEINE
     Dosage: 300 MG
     Route: 048
     Dates: start: 20200218, end: 20200218
  23. ERDOS [Concomitant]
     Active Substance: ERDOSTEINE
     Dosage: 600 MG
     Dates: start: 20200219
  24. XATRAL                             /00975302/ [Concomitant]
     Active Substance: ALFUZOSIN HYDROCHLORIDE
     Dosage: 10 MG
     Route: 048
     Dates: start: 20150709, end: 20200216
  25. BEPOTEN [Concomitant]
     Indication: COUGH
     Dosage: 20 MG
     Route: 048
     Dates: start: 20191128, end: 20200119
  26. RIVAROXABAN [Suspect]
     Active Substance: RIVAROXABAN
     Indication: ATRIAL FIBRILLATION
     Dosage: 15 MG, QD
     Route: 048
     Dates: start: 20200303
  27. LASIX [Concomitant]
     Active Substance: FUROSEMIDE
     Dosage: 40 MG
     Route: 048
     Dates: start: 20171204
  28. TAMSNAL [Concomitant]
     Dosage: 0.2 MG
     Route: 048
     Dates: start: 20160426, end: 20200216
  29. ERDOS [Concomitant]
     Active Substance: ERDOSTEINE
     Dosage: 600 MG
     Route: 048
     Dates: start: 20180710, end: 20200217

REACTIONS (2)
  - Cardiac failure congestive [Recovered/Resolved]
  - Gastrointestinal angiodysplasia [Recovered/Resolved]

NARRATIVE: CASE EVENT DATE: 20200217
